FAERS Safety Report 12588884 (Version 1)
Quarter: 2016Q3

REPORT INFORMATION
  Report Type: Spontaneous
  Country: US (occurrence: US)
  Receive Date: 20160725
  Receipt Date: 20160725
  Transmission Date: 20161109
  Serious: No
  Sender: FDA-Public Use
  Company Number: US-JNJFOC-20160700834

PATIENT
  Age: 75 Year
  Sex: Female
  Weight: 82.56 kg

DRUGS (1)
  1. TYLENOL EXTRA STRENGTH [Suspect]
     Active Substance: ACETAMINOPHEN
     Indication: PREMEDICATION
     Dosage: ONCE
     Route: 048
     Dates: start: 20160621, end: 20160621

REACTIONS (2)
  - Product use issue [Unknown]
  - Off label use [Unknown]
